FAERS Safety Report 5074955-9 (Version None)
Quarter: 2006Q3

REPORT INFORMATION
  Report Type: 
  Country: None (occurrence: None)
  Receive Date: 20060717
  Receipt Date: 20060113
  Transmission Date: 20061208
  Serious: No
  Sender: FDA-Public Use
  Company Number: 2006000121

PATIENT
  Age: 59 Year
  Sex: Female

DRUGS (7)
  1. TARCEVA [Suspect]
     Dosage: ORAL
     Route: 047
     Dates: start: 20051107, end: 20051130
  2. CELEBREX [Concomitant]
  3. NEURONTIN [Concomitant]
  4. LEVOXYL [Concomitant]
  5. NEXIUM [Concomitant]
  6. FOLIC ACID [Concomitant]
  7. CYMBALTA [Concomitant]

REACTIONS (1)
  - ARTHRALGIA [None]
